FAERS Safety Report 6144796-X (Version None)
Quarter: 2009Q2

REPORT INFORMATION
  Report Type: 
  Country: None (occurrence: None)
  Receive Date: 20090401
  Receipt Date: 20090401
  Transmission Date: 20091009
  Serious: Yes (Hospitalization)
  Sender: FDA-Public Use
  Company Number: None

PATIENT
  Sex: Male
  Weight: 14.7 kg

DRUGS (5)
  1. DOXORUBICIN HCL [Suspect]
     Dosage: 45 MG
  2. METHOTREXATE [Suspect]
     Dosage: 10 MG
  3. PEG-L-ASPARAGINASE (K-H) [Suspect]
     Dosage: 1500 IU
  4. VINCRISTINE SULFATE [Suspect]
     Dosage: 2.7 MG
  5. DEXAMETHASONE [Suspect]
     Dosage: 58.5 MG

REACTIONS (11)
  - ABDOMINAL PAIN [None]
  - ACIDOSIS [None]
  - FEBRILE NEUTROPENIA [None]
  - GENERAL PHYSICAL HEALTH DETERIORATION [None]
  - HYPOXIA [None]
  - ILEUS PARALYTIC [None]
  - LOBAR PNEUMONIA [None]
  - MUCOSAL INFLAMMATION [None]
  - MULTI-ORGAN FAILURE [None]
  - RENAL IMPAIRMENT [None]
  - RESPIRATORY DISORDER [None]
